FAERS Safety Report 15075031 (Version 1)
Quarter: 2018Q2

REPORT INFORMATION
  Report Type: Spontaneous
  Country: US (occurrence: US)
  Receive Date: 20180627
  Receipt Date: 20180627
  Transmission Date: 20180711
  Serious: Yes (Hospitalization, Other)
  Sender: FDA-Public Use
  Company Number: US-SAOL THERAPEUTICS-2017SAO01328

PATIENT
  Age: 25 Year

DRUGS (4)
  1. LIORESAL [Suspect]
     Active Substance: BACLOFEN
     Indication: MOVEMENT DISORDER
  2. LIORESAL [Suspect]
     Active Substance: BACLOFEN
     Indication: DYSTONIA
  3. LIORESAL [Suspect]
     Active Substance: BACLOFEN
     Indication: MUSCLE SPASTICITY
     Dosage: 1430 ?G, \DAY
     Route: 037
  4. LIORESAL [Suspect]
     Active Substance: BACLOFEN
     Indication: CEREBRAL PALSY
     Dosage: 100 ?G, \DAY
     Route: 037

REACTIONS (5)
  - Pruritus [Unknown]
  - Complication associated with device [Unknown]
  - Headache [Unknown]
  - Device failure [Unknown]
  - Chills [Unknown]

NARRATIVE: CASE EVENT DATE: 20170808
